FAERS Safety Report 24823669 (Version 2)
Quarter: 2025Q1

REPORT INFORMATION
  Report Type: Spontaneous
  Country: EE (occurrence: EE)
  Receive Date: 20250109
  Receipt Date: 20250205
  Transmission Date: 20250409
  Serious: Yes (Other)
  Sender: GLAXOSMITHKLINE
  Company Number: None

PATIENT

DRUGS (1)
  1. FLUTICASONE FUROATE\VILANTEROL TRIFENATATE [Suspect]
     Active Substance: FLUTICASONE FUROATE\VILANTEROL TRIFENATATE
     Indication: Product used for unknown indication
     Dosage: UNK UNK, QD
     Route: 055
     Dates: start: 20241112, end: 20241119

REACTIONS (4)
  - Optic neuritis [Recovering/Resolving]
  - Headache [Recovering/Resolving]
  - Eye pain [Recovering/Resolving]
  - Blepharitis [Recovering/Resolving]

NARRATIVE: CASE EVENT DATE: 20241117
